FAERS Safety Report 8880747 (Version 1)
Quarter: 2012Q4

REPORT INFORMATION
  Report Type: 
  Country: PT (occurrence: PT)
  Receive Date: 20121101
  Receipt Date: 20121101
  Transmission Date: 20130627
  Serious: No
  Sender: FDA-Public Use
  Company Number: PT-GLAXOSMITHKLINE-B0531625A

PATIENT
  Age: 24 Year
  Sex: Female

DRUGS (1)
  1. SERETIDE [Suspect]
     Indication: ASTHMA
     Route: 055
     Dates: start: 20080106, end: 20080106

REACTIONS (4)
  - Tachycardia [Recovered/Resolved]
  - Tremor [Unknown]
  - Chest discomfort [Unknown]
  - Discomfort [Unknown]
